FAERS Safety Report 21419720 (Version 1)
Quarter: 2022Q4

REPORT INFORMATION
  Report Type: Report from Study
  Country: CA (occurrence: CA)
  Receive Date: 20221006
  Receipt Date: 20221006
  Transmission Date: 20230113
  Serious: Yes (Hospitalization, Other)
  Sender: FDA-Public Use
  Company Number: CA-BRISTOL-MYERS SQUIBB COMPANY-2022-025143

PATIENT
  Age: 79 Year
  Sex: Female

DRUGS (12)
  1. ORENCIA [Suspect]
     Active Substance: ABATACEPT
     Indication: Rheumatoid arthritis
     Dosage: 4 WEEK
     Route: 042
     Dates: start: 20211104
  2. Lenoltec [Concomitant]
     Indication: Product used for unknown indication
     Route: 065
  3. LEVOTHYROXINE SODIUM [Concomitant]
     Active Substance: LEVOTHYROXINE SODIUM
     Indication: Product used for unknown indication
     Route: 065
  4. Rosuvstatin [Concomitant]
     Indication: Product used for unknown indication
     Route: 065
  5. PREGABALIN [Concomitant]
     Active Substance: PREGABALIN
     Indication: Product used for unknown indication
     Route: 065
  6. DULOXETINE [Concomitant]
     Active Substance: DULOXETINE
     Indication: Product used for unknown indication
     Route: 065
  7. quinapril magnesium [Concomitant]
     Indication: Product used for unknown indication
     Route: 065
  8. DOCUSATE [Concomitant]
     Active Substance: DOCUSATE
     Indication: Product used for unknown indication
     Route: 065
  9. LEFLUNOMIDE [Concomitant]
     Active Substance: LEFLUNOMIDE
     Indication: Product used for unknown indication
     Route: 065
  10. VITAMIN B [Concomitant]
     Active Substance: VITAMIN B
     Indication: Product used for unknown indication
     Route: 065
  11. TYLENOL [Concomitant]
     Active Substance: ACETAMINOPHEN
     Indication: Product used for unknown indication
     Route: 065
  12. PROLIA [Concomitant]
     Active Substance: DENOSUMAB
     Indication: Product used for unknown indication
     Route: 065

REACTIONS (14)
  - Weight increased [Not Recovered/Not Resolved]
  - Weight decreased [Unknown]
  - Intentional product use issue [Unknown]
  - Abdominal pain [Unknown]
  - Nausea [Unknown]
  - Vomiting [Unknown]
  - Nasopharyngitis [Unknown]
  - Chills [Unknown]
  - Hyperhidrosis [Unknown]
  - Tooth disorder [Unknown]
  - Pain [Unknown]
  - Hypoaesthesia [Unknown]
  - Drug ineffective [Unknown]
  - Gastric cancer recurrent [Unknown]

NARRATIVE: CASE EVENT DATE: 20220101
